FAERS Safety Report 7078147-3 (Version None)
Quarter: 2010Q4

REPORT INFORMATION
  Report Type: 
  Country: None (occurrence: None)
  Receive Date: 20101101
  Receipt Date: 20101101
  Transmission Date: 20110411
  Serious: No
  Sender: FDA-Public Use
  Company Number: None

PATIENT
  Age: 85 Year
  Sex: Female
  Weight: 48.9885 kg

DRUGS (12)
  1. GAMMAGARD LIQUID [Suspect]
     Indication: TOXIC NEUROPATHY
     Dosage: 60 GRAM IV EVERY 5 WEEKS WITH ACCREDO
     Route: 042
     Dates: start: 20051001
  2. NORMAL SALINE [Concomitant]
  3. FOSAMAX [Concomitant]
  4. SINGULAIR [Concomitant]
  5. TYLENOL (CAPLET) [Concomitant]
  6. METFORMIN HCL [Concomitant]
  7. PRAVASTATIN [Concomitant]
  8. SODIUM [Concomitant]
  9. ATACAND [Concomitant]
  10. HCT [Concomitant]
  11. MULTI-VITAMIN [Concomitant]
  12. PREDNISONE [Concomitant]

REACTIONS (3)
  - INFUSION RELATED REACTION [None]
  - PANCREATITIS ACUTE [None]
  - URTICARIA [None]
